FAERS Safety Report 8043136-9 (Version None)
Quarter: 2012Q1

REPORT INFORMATION
  Report Type: 
  Country: None (occurrence: None)
  Receive Date: 20120112
  Receipt Date: 20120104
  Transmission Date: 20120608
  Serious: Yes (Other)
  Sender: FDA-Public Use
  Company Number: PHHY2012ES001344

PATIENT
  Age: 26 Year
  Sex: Female

DRUGS (4)
  1. METYRAPONE [Suspect]
     Dosage: 500 MG, BID
  2. ALFAMETILDOPA [Concomitant]
     Dosage: 250 MG, BID
  3. METYRAPONE [Suspect]
     Dosage: 250 MG, BID
  4. LABETALOL HCL [Concomitant]

REACTIONS (3)
  - GESTATIONAL DIABETES [None]
  - MATERNAL EXPOSURE DURING PREGNANCY [None]
  - PREMATURE LABOUR [None]
